FAERS Safety Report 6247802-7 (Version None)
Quarter: 2009Q2

REPORT INFORMATION
  Report Type: 
  Country: None (occurrence: None)
  Receive Date: 20090626
  Receipt Date: 20090615
  Transmission Date: 20091009
  Serious: Yes (Hospitalization)
  Sender: FDA-Public Use
  Company Number: PHHY2009DE25694

PATIENT
  Sex: Male

DRUGS (5)
  1. LEPONEX [Suspect]
     Dosage: UNK
     Dates: start: 20060101
  2. LEPONEX [Suspect]
     Dosage: 12.5 MG/DAY
     Route: 048
     Dates: start: 20090106, end: 20090108
  3. LEPONEX [Suspect]
     Dosage: 25 MG/DAY
     Route: 048
     Dates: start: 20090109
  4. HALDOL [Suspect]
     Dosage: 5 MG/DAY
     Route: 048
     Dates: start: 20090106
  5. HALDOL [Suspect]
     Dosage: 5 MG/DAY
     Route: 048
     Dates: start: 20090108

REACTIONS (1)
  - ATRIOVENTRICULAR BLOCK SECOND DEGREE [None]
